FAERS Safety Report 14170883 (Version 4)
Quarter: 2018Q1

REPORT INFORMATION
  Report Type: Spontaneous
  Country: JP (occurrence: JP)
  Receive Date: 20171108
  Receipt Date: 20180119
  Transmission Date: 20180508
  Serious: Yes (Hospitalization)
  Sender: FDA-Public Use
  Company Number: JP-DSJP-DSJ-2017-145946

PATIENT

DRUGS (8)
  1. CILOSTAZOL. [Concomitant]
     Active Substance: CILOSTAZOL
     Indication: PERIPHERAL ARTERIAL OCCLUSIVE DISEASE
     Dosage: 100 MG, BID
     Route: 048
     Dates: start: 201507, end: 20171001
  2. TRAMCET [Concomitant]
     Active Substance: ACETAMINOPHEN\TRAMADOL
     Indication: ANALGESIC THERAPY
     Dosage: 2DF, BID
     Route: 048
     Dates: start: 201611, end: 20171001
  3. FUROSEMIDE. [Concomitant]
     Active Substance: FUROSEMIDE
     Indication: CARDIAC FAILURE CONGESTIVE
     Dosage: 20 MG, QD
     Route: 048
     Dates: start: 201506, end: 20171001
  4. BISOPROLOL                         /00802602/ [Concomitant]
     Active Substance: BISOPROLOL
     Indication: ATRIAL FIBRILLATION
     Dosage: 2.5 MG, QD
     Route: 048
     Dates: start: 201507, end: 20171001
  5. LIXIANA TABLETS 15MG [Suspect]
     Active Substance: EDOXABAN TOSYLATE
     Indication: ATRIAL FIBRILLATION
     Dosage: 30 MG, QD
     Route: 048
     Dates: start: 20170805, end: 20171001
  6. LANSOPRAZOLE. [Concomitant]
     Active Substance: LANSOPRAZOLE
     Indication: GASTRITIS
     Dosage: 15 MG, QD
     Route: 048
     Dates: start: 201703, end: 20171001
  7. FLUITRAN [Concomitant]
     Active Substance: TRICHLORMETHIAZIDE
     Indication: CARDIAC FAILURE CONGESTIVE
     Dosage: 2 MG, QD
     Route: 048
     Dates: start: 201506, end: 20171001
  8. GOREISAN                           /08015701/ [Concomitant]
     Active Substance: HERBALS
     Indication: CARDIAC FAILURE CONGESTIVE
     Dosage: 2.5 G, BID
     Route: 048
     Dates: start: 201506, end: 20171001

REACTIONS (3)
  - Renal impairment [Recovering/Resolving]
  - Haemorrhagic hepatic cyst [Recovered/Resolved with Sequelae]
  - Decreased appetite [Recovering/Resolving]

NARRATIVE: CASE EVENT DATE: 20170915
